FAERS Safety Report 15090427 (Version 1)
Quarter: 2018Q2

REPORT INFORMATION
  Report Type: Spontaneous
  Country: JP (occurrence: JP)
  Receive Date: 20180629
  Receipt Date: 20180629
  Transmission Date: 20180711
  Serious: Yes (Other)
  Sender: FDA-Public Use
  Company Number: JP-GLAXOSMITHKLINE-JP2018JPN103991

PATIENT
  Age: 62 Year
  Sex: Male

DRUGS (20)
  1. METGLUCO TABLETS [Concomitant]
     Dosage: 500 MG, TID(MORNING, NOON, EVENING)
  2. DAONIL [Concomitant]
     Active Substance: GLYBURIDE
     Dosage: 2.5 MG, TID(MORNING, NOON, EVENING)
  3. GABAPEN [Concomitant]
     Active Substance: GABAPENTIN
     Dosage: 400 MG, TID(MORNING, NOON, EVENING)
  4. ONON [Concomitant]
     Active Substance: PRANLUKAST
     Dosage: UNK
     Dates: end: 20180611
  5. LAXOBERON SOLUTION [Concomitant]
     Indication: CONSTIPATION
     Dosage: 15 DROPS, PRN
  6. TARIVID [Concomitant]
     Active Substance: OFLOXACIN
     Dosage: UNK UNK, BID
  7. LOXONIN TABLETS [Concomitant]
     Active Substance: LOXOPROFEN SODIUM
     Dosage: 120 MG, TID(MORNING, NOON, EVENING)
  8. GASTER D TABLETS [Concomitant]
     Dosage: 20 MG, BID(MORNING,EVENING)
  9. ALINAMIN F [Concomitant]
     Active Substance: FURSULTIAMINE HYDROCHLORIDE
     Dosage: 50 MG, BID(MORNING, EVENING)
  10. LOXONIN TAPE [Concomitant]
     Dosage: 1 DF, 1D
  11. BUFFERIN COMBINATION TABLET [Concomitant]
     Indication: HEADACHE
     Dosage: 330 MG, PRN
  12. E KEPPRA TABLETS [Concomitant]
     Dosage: 500 MG, BID(MORNING, EVENING)
  13. VOLTAREN SR CAPSULE [Concomitant]
     Indication: PAIN
     Dosage: 75 MG, PRN
  14. ROHYPNOL TABLETS [Concomitant]
     Dosage: 4 MG, QD(BEFORE BEDTIME)
  15. FLUNASE [Suspect]
     Active Substance: FLUTICASONE PROPIONATE
     Indication: RHINITIS ALLERGIC
     Dosage: 200 ?G, BID
     Route: 045
     Dates: start: 20180306
  16. HALCION TABLET [Concomitant]
     Dosage: 0.5 MG, QD(BEFORE BEDTIME)
  17. LENDORMIN [Concomitant]
     Active Substance: BROTIZOLAM
     Dosage: 0.5 MG, QD(BEFORE BEDTIME)
  18. DEPAKENE-R TABLET [Concomitant]
     Dosage: 1600 MG, 1D(MORNING 600MG, NOON 400MG, EVENING 600MG)
  19. BEZATOL SR TABLET [Concomitant]
     Dosage: 200 MG, BID(MORNING,EVENING)
  20. CHOCOLA A [Concomitant]
     Dosage: 20000 IU, BID(MORNING, EVENING)

REACTIONS (6)
  - Gait disturbance [Unknown]
  - Epistaxis [Unknown]
  - Agitation [Unknown]
  - Cough [Unknown]
  - Epilepsy [Unknown]
  - Choking sensation [Unknown]

NARRATIVE: CASE EVENT DATE: 20180528
